FAERS Safety Report 18587908 (Version 3)
Quarter: 2021Q3

REPORT INFORMATION
  Report Type: Report from Study
  Country: DE (occurrence: DE)
  Receive Date: 20201207
  Receipt Date: 20210825
  Transmission Date: 20211014
  Serious: Yes (Hospitalization, Other)
  Sender: FDA-Public Use
  Company Number: DE-TAKEDA-2020TUS053853

PATIENT
  Age: 73 Year
  Sex: Male

DRUGS (24)
  1. TEDUGLUTIDE [Suspect]
     Active Substance: TEDUGLUTIDE
     Indication: PRODUCT USED FOR UNKNOWN INDICATION
     Dosage: 2 MILLIGRAM, QD
     Route: 065
     Dates: start: 20160114, end: 20160522
  2. TEDUGLUTIDE [Suspect]
     Active Substance: TEDUGLUTIDE
     Indication: PRODUCT USED FOR UNKNOWN INDICATION
     Dosage: 2 MILLIGRAM, QD
     Route: 065
     Dates: start: 20160114, end: 20160522
  3. TEDUGLUTIDE [Suspect]
     Active Substance: TEDUGLUTIDE
     Dosage: 3.7 MILLIGRAM, QD
     Route: 065
     Dates: start: 20160526, end: 201608
  4. TEDUGLUTIDE [Suspect]
     Active Substance: TEDUGLUTIDE
     Dosage: 3.7 MILLIGRAM, QD
     Route: 065
     Dates: start: 20160526, end: 201608
  5. TEDUGLUTIDE [Suspect]
     Active Substance: TEDUGLUTIDE
     Dosage: 2 MILLIGRAM, QD
     Route: 065
     Dates: start: 201609
  6. FERINJECT [Concomitant]
     Active Substance: FERRIC CARBOXYMALTOSE
     Dosage: 5 MILLIGRAM, PRN
     Route: 042
     Dates: start: 2019, end: 2020
  7. TEDUGLUTIDE [Suspect]
     Active Substance: TEDUGLUTIDE
     Dosage: 5 MILLIGRAM, QD
     Route: 065
     Dates: start: 201608, end: 201609
  8. JONOSTERIL [Concomitant]
     Indication: METABOLIC ACIDOSIS
     Dosage: 2?3 TIMES A WEEK
     Route: 042
     Dates: start: 20210123
  9. PREDNISONE. [Concomitant]
     Active Substance: PREDNISONE
     Indication: GOUT
     Dosage: UNK MILLIGRAM
     Route: 048
     Dates: start: 202005
  10. SODIUM [Concomitant]
     Active Substance: SODIUM
     Dosage: 840 MILLIGRAM, TID
     Route: 048
     Dates: start: 2020
  11. AZITHROMYCIN ANHYDROUS. [Concomitant]
     Active Substance: AZITHROMYCIN ANHYDROUS
     Indication: CAMPYLOBACTER GASTROENTERITIS
     Dosage: UNK
     Route: 065
     Dates: start: 20210123, end: 20210125
  12. TEDUGLUTIDE [Suspect]
     Active Substance: TEDUGLUTIDE
     Dosage: 5 MILLIGRAM, QD
     Route: 065
     Dates: start: 201608, end: 201609
  13. TEDUGLUTIDE [Suspect]
     Active Substance: TEDUGLUTIDE
     Dosage: 2 MILLIGRAM, QD
     Route: 065
     Dates: start: 201609
  14. ALLOPURINOL. [Concomitant]
     Active Substance: ALLOPURINOL
     Indication: GOUT
     Dosage: 100 MILLIGRAM, QD
     Route: 048
     Dates: start: 202005
  15. TEDUGLUTIDE [Suspect]
     Active Substance: TEDUGLUTIDE
     Indication: PRODUCT USED FOR UNKNOWN INDICATION
     Dosage: 2 MILLIGRAM, QD
     Route: 065
     Dates: start: 20160114, end: 20160522
  16. TEDUGLUTIDE [Suspect]
     Active Substance: TEDUGLUTIDE
     Dosage: 5 MILLIGRAM, QD
     Route: 065
     Dates: start: 201608, end: 201609
  17. SULTAMICILLIN [Concomitant]
     Active Substance: SULTAMICILLIN
     Indication: ANTIBIOTIC THERAPY
     Dosage: 375 MILLIGRAM, BID
     Route: 048
     Dates: start: 20200709, end: 20200711
  18. TEDUGLUTIDE [Suspect]
     Active Substance: TEDUGLUTIDE
     Dosage: 3.7 MILLIGRAM, QD
     Route: 065
     Dates: start: 20160526, end: 201608
  19. TEDUGLUTIDE [Suspect]
     Active Substance: TEDUGLUTIDE
     Dosage: 3.7 MILLIGRAM, QD
     Route: 065
     Dates: start: 20160526, end: 201608
  20. TEDUGLUTIDE [Suspect]
     Active Substance: TEDUGLUTIDE
     Dosage: 5 MILLIGRAM, QD
     Route: 065
     Dates: start: 201608, end: 201609
  21. TEDUGLUTIDE [Suspect]
     Active Substance: TEDUGLUTIDE
     Indication: PRODUCT USED FOR UNKNOWN INDICATION
     Dosage: 2 MILLIGRAM, QD
     Route: 065
     Dates: start: 20160114, end: 20160522
  22. TEDUGLUTIDE [Suspect]
     Active Substance: TEDUGLUTIDE
     Dosage: 2 MILLIGRAM, QD
     Route: 065
     Dates: start: 201609
  23. TEDUGLUTIDE [Suspect]
     Active Substance: TEDUGLUTIDE
     Dosage: 2 MILLIGRAM, QD
     Route: 065
     Dates: start: 201609
  24. NOVAMINSULFON [Concomitant]
     Active Substance: METAMIZOLE
     Indication: PAIN
     Dosage: 500 MILLIGRAM, QID
     Route: 048
     Dates: start: 20210123

REACTIONS (5)
  - Abdominal pain [Recovered/Resolved]
  - Nephrolithiasis [Recovered/Resolved]
  - Diarrhoea [Recovered/Resolved]
  - Ureterolithiasis [Recovered/Resolved]
  - Renal stone removal [Recovered/Resolved]

NARRATIVE: CASE EVENT DATE: 202005
